FAERS Safety Report 24172026 (Version 1)
Quarter: 2024Q3

REPORT INFORMATION
  Report Type: Report from Study
  Country: US (occurrence: None)
  Receive Date: 20240805
  Receipt Date: 20240805
  Transmission Date: 20241017
  Serious: Yes (Other)
  Sender: ASTRAZENECA
  Company Number: 2021A675627

PATIENT
  Age: 65 Year
  Sex: Female
  Weight: 69.4 kg

DRUGS (1)
  1. TAGRISSO [Suspect]
     Active Substance: OSIMERTINIB
     Indication: Non-small cell lung cancer
     Route: 048
     Dates: start: 20210707

REACTIONS (3)
  - Taste disorder [Unknown]
  - Scab [Recovering/Resolving]
  - Rash pruritic [Recovering/Resolving]
